FAERS Safety Report 7585581-1 (Version None)
Quarter: 2011Q2

REPORT INFORMATION
  Report Type: 
  Country: None (occurrence: None)
  Receive Date: 20110628
  Receipt Date: 20110628
  Transmission Date: 20111010
  Serious: Yes (Other)
  Sender: FDA-Public Use
  Company Number: None

PATIENT
  Sex: Female
  Weight: 48.5349 kg

DRUGS (8)
  1. AZITHROMYCIN [Concomitant]
  2. ETHAMBUTOL HYDROCHLORIDE [Concomitant]
  3. ROPINIROLE [Concomitant]
  4. CLOFAZIMINE [Suspect]
     Indication: MYCOBACTERIUM AVIUM COMPLEX INFECTION
     Dosage: 100MG PO
     Route: 048
     Dates: start: 20110314, end: 20110607
  5. SPIRIVA [Concomitant]
  6. ALBUTEROL SULFATE AUTOHALER [Concomitant]
  7. ASPIRIN [Concomitant]
  8. TRAZODONE HCL [Concomitant]

REACTIONS (5)
  - ANAEMIA [None]
  - WEIGHT DECREASED [None]
  - BRONCHITIS VIRAL [None]
  - DECREASED APPETITE [None]
  - ACHLORHYDRIA [None]
